FAERS Safety Report 17906272 (Version 4)
Quarter: 2020Q3

REPORT INFORMATION
  Report Type: Spontaneous
  Country: FR (occurrence: FR)
  Receive Date: 20200617
  Receipt Date: 20200912
  Transmission Date: 20201103
  Serious: Yes (Other)
  Sender: FDA-Public Use
  Company Number: NVSC2020FR168688

PATIENT
  Sex: Female
  Weight: 53 kg

DRUGS (4)
  1. ENTRESTO [Suspect]
     Active Substance: SACUBITRIL\VALSARTAN
     Indication: CARDIAC FAILURE
     Dosage: 100 MG (49/51 MG), BID
     Route: 065
     Dates: start: 201709
  2. ENTRESTO [Suspect]
     Active Substance: SACUBITRIL\VALSARTAN
     Indication: EJECTION FRACTION DECREASED
     Dosage: 200 MG (97/103 MG), BID
     Route: 065
     Dates: start: 20171005, end: 20200627
  3. ENTRESTO [Suspect]
     Active Substance: SACUBITRIL\VALSARTAN
     Dosage: 2 DF, BID (49 MG / 51 MG (MORNING AND EVENING)
     Route: 065
     Dates: start: 20200627
  4. ENTRESTO [Suspect]
     Active Substance: SACUBITRIL\VALSARTAN
     Dosage: 200 MG, QD (DAILY IN THE MORNING)
     Route: 065
     Dates: start: 20200908

REACTIONS (13)
  - Tracheitis [Unknown]
  - Fatigue [Unknown]
  - Weight increased [Unknown]
  - Nausea [Unknown]
  - Ear discomfort [Unknown]
  - Dysphagia [Unknown]
  - Muscle spasms [Unknown]
  - Inappropriate schedule of product administration [Unknown]
  - Product prescribing error [Unknown]
  - Dizziness [Unknown]
  - Insomnia [Unknown]
  - Feeling abnormal [Unknown]
  - Neuralgia [Unknown]

NARRATIVE: CASE EVENT DATE: 201710
